FAERS Safety Report 16847041 (Version 1)
Quarter: 2019Q3

REPORT INFORMATION
  Report Type: Spontaneous
  Country: FR (occurrence: FR)
  Receive Date: 20190924
  Receipt Date: 20190924
  Transmission Date: 20191005
  Serious: Yes (Hospitalization)
  Sender: FDA-Public Use
  Company Number: PHHY2019FR220815

PATIENT
  Age: 65 Year
  Sex: Female
  Weight: 45 kg

DRUGS (3)
  1. PREVNAR 13 [Suspect]
     Active Substance: PNEUMOCOCCAL 13-VALENT CONJUGATE VACCINE
     Indication: IMMUNISATION
     Dosage: UNK (SINGLE DOSE)
     Route: 030
     Dates: start: 20170330, end: 20170330
  2. OMEPRAZOLE. [Concomitant]
     Active Substance: OMEPRAZOLE
     Indication: GASTRIC MUCOSA ERYTHEMA
     Dosage: UNK
     Route: 065
  3. PREDNISONE. [Suspect]
     Active Substance: PREDNISONE
     Indication: CROHN^S DISEASE
     Dosage: 40 MG, QD
     Route: 048
     Dates: start: 20190721

REACTIONS (2)
  - Abdominal pain upper [Not Recovered/Not Resolved]
  - Drug ineffective [Not Recovered/Not Resolved]

NARRATIVE: CASE EVENT DATE: 20190819
